FAERS Safety Report 5240443-X (Version None)
Quarter: 2007Q1

REPORT INFORMATION
  Report Type: 
  Country: None (occurrence: None)
  Receive Date: 20061208
  Receipt Date: 20060406
  Transmission Date: 20070707
  Serious: Yes (Other)
  Sender: FDA-Public Use
  Company Number: 2006UW06129

PATIENT
  Age: 81 Year
  Sex: Female
  Weight: 58.967 kg

DRUGS (4)
  1. CRESTOR [Suspect]
     Indication: BLOOD CHOLESTEROL INCREASED
     Dosage: 10 MG PO
     Route: 048
     Dates: start: 20051001
  2. TOPROL-XL [Concomitant]
  3. SYNTHROID [Concomitant]
  4. LASIX [Concomitant]

REACTIONS (1)
  - DRY MOUTH [None]
